FAERS Safety Report 22259759 (Version 1)
Quarter: 2023Q2

REPORT INFORMATION
  Report Type: Spontaneous
  Country: US (occurrence: None)
  Receive Date: 20230427
  Receipt Date: 20230427
  Transmission Date: 20230721
  Serious: Yes (Hospitalization, Other)
  Sender: FDA-Public Use
  Company Number: US-MYLANLABS-2023M1010482

PATIENT
  Age: 44 Year
  Sex: Male

DRUGS (1)
  1. PREDNISONE [Suspect]
     Active Substance: PREDNISONE
     Indication: Dermatitis contact
     Dosage: UNKNOWN
     Route: 048

REACTIONS (4)
  - Uveitis [Recovered/Resolved]
  - Retinopathy [Recovering/Resolving]
  - Disease progression [Recovering/Resolving]
  - Eye infection syphilitic [Recovered/Resolved]
